FAERS Safety Report 17862133 (Version 3)
Quarter: 2020Q4

REPORT INFORMATION
  Report Type: Spontaneous
  Country: IT (occurrence: IT)
  Receive Date: 20200604
  Receipt Date: 20201105
  Transmission Date: 20210113
  Serious: Yes (Hospitalization, Other)
  Sender: FDA-Public Use
  Company Number: IT-INCYTE CORPORATION-2020IN005004

PATIENT

DRUGS (10)
  1. HYDROXYCHLOROQUINE [Concomitant]
     Active Substance: HYDROXYCHLOROQUINE
     Indication: COVID-19
     Dosage: 400 MG, QD
     Route: 065
  2. JAKAVI [Interacting]
     Active Substance: RUXOLITINIB
     Dosage: 20 MG, QD
     Route: 065
  3. JAKAVI [Interacting]
     Active Substance: RUXOLITINIB
     Dosage: 4 DF, QD
     Route: 065
  4. ENOXAPARIN [Concomitant]
     Active Substance: ENOXAPARIN
     Indication: COVID-19
     Dosage: 6000 IU
     Route: 065
  5. DEXAMETHASONE. [Concomitant]
     Active Substance: DEXAMETHASONE
     Indication: COVID-19
     Dosage: 20 MG
     Route: 065
  6. LOPINAVIR/RITONAVIR [Interacting]
     Active Substance: LOPINAVIR\RITONAVIR
     Indication: COVID-19
     Dosage: 4 DF, QD, LOPINAVIR 200 MG, RITONAVIR 50 MG
     Route: 048
  7. TOCILIZUMAB. [Concomitant]
     Active Substance: TOCILIZUMAB
     Indication: COVID-19
     Dosage: SUBCUTANEOUS INJECTIONS PER 2 CYCLES A WEEK OF TOCILIZUMAB 162 MG
     Route: 058
  8. JAKAVI [Interacting]
     Active Substance: RUXOLITINIB
     Dosage: 2 DF, QD
     Route: 065
  9. JAKAVI [Suspect]
     Active Substance: RUXOLITINIB
     Indication: COVID-19
     Dosage: 10 MG, QD
     Route: 065
  10. JAKAVI [Interacting]
     Active Substance: RUXOLITINIB
     Dosage: 5 MG, PRECOCIOUSLY TAPERED
     Route: 065

REACTIONS (10)
  - Localised infection [Unknown]
  - Purpura [Unknown]
  - Platelet count decreased [Unknown]
  - Off label use [Unknown]
  - Drug level increased [Unknown]
  - Product use in unapproved indication [Unknown]
  - Drug interaction [Unknown]
  - Skin lesion [Unknown]
  - Soft tissue infection [Unknown]
  - Haematocrit decreased [Unknown]
